FAERS Safety Report 23175669 (Version 2)
Quarter: 2023Q4

REPORT INFORMATION
  Report Type: Report from Study
  Country: US (occurrence: US)
  Receive Date: 20231113
  Receipt Date: 20231211
  Transmission Date: 20240110
  Serious: Yes (Other)
  Sender: FDA-Public Use
  Company Number: US-ABBVIE-5488264

PATIENT
  Sex: Female

DRUGS (1)
  1. HUMIRA [Suspect]
     Active Substance: ADALIMUMAB
     Indication: Rheumatoid arthritis
     Dosage: CITRATE FREE?FORM STRENGTH 40 MILLIGRAMS
     Route: 058
     Dates: start: 20230626

REACTIONS (3)
  - Breast mass [Not Recovered/Not Resolved]
  - Fatigue [Recovered/Resolved]
  - Chondroplasty [Recovering/Resolving]

NARRATIVE: CASE EVENT DATE: 20230101
